FAERS Safety Report 5146885-5 (Version None)
Quarter: 2006Q4

REPORT INFORMATION
  Report Type: 
  Country: None (occurrence: None)
  Receive Date: 20061109
  Receipt Date: 20061101
  Transmission Date: 20070319
  Serious: Yes (Hospitalization)
  Sender: FDA-Public Use
  Company Number: CH-GLAXOSMITHKLINE-B0445690A

PATIENT

DRUGS (3)
  1. LAMICTAL [Suspect]
     Indication: DRUG USE FOR UNKNOWN INDICATION
     Route: 048
  2. ANTIBIOTICS [Concomitant]
  3. VALPROATE SODIUM [Concomitant]

REACTIONS (2)
  - DERMATITIS ALLERGIC [None]
  - HEPATOTOXICITY [None]
